FAERS Safety Report 8585137-8 (Version None)
Quarter: 2012Q3

REPORT INFORMATION
  Report Type: 
  Country: None (occurrence: None)
  Receive Date: 20120810
  Receipt Date: 20120806
  Transmission Date: 20120928
  Serious: Yes (Hospitalization)
  Sender: FDA-Public Use
  Company Number: PHHY2012JP062635

PATIENT
  Age: 82 Year
  Sex: Male

DRUGS (3)
  1. TEGRETOL [Suspect]
     Indication: NEURALGIA
     Dosage: DOSES BETWEEN 200MG AND 300MG
     Dates: start: 20091002, end: 20120704
  2. TEGRETOL [Suspect]
     Dosage: 400 MG, QD (IN 4 DOSES PER DAY)
     Dates: start: 20120705, end: 20120716
  3. TEGRETOL [Suspect]
     Dosage: 400 MG, QD (IN 4 DOSES PER DAY)
     Dates: start: 20120719

REACTIONS (2)
  - MUSCULAR WEAKNESS [None]
  - PNEUMONIA ASPIRATION [None]
